FAERS Safety Report 24171486 (Version 5)
Quarter: 2024Q3

REPORT INFORMATION
  Report Type: Spontaneous
  Country: US (occurrence: US)
  Receive Date: 20240805
  Receipt Date: 20240827
  Transmission Date: 20241017
  Serious: Yes (Death, Other)
  Sender: ROCHE
  Company Number: US-ROCHE-10000047347

PATIENT
  Sex: Female

DRUGS (1)
  1. TNKASE [Suspect]
     Active Substance: TENECTEPLASE
     Indication: Cerebrovascular accident
     Route: 065
     Dates: start: 20240730

REACTIONS (3)
  - Haemorrhage intracranial [Unknown]
  - Off label use [Unknown]
  - Death [Fatal]
